FAERS Safety Report 4745003-2 (Version None)
Quarter: 2005Q3

REPORT INFORMATION
  Report Type: 
  Country: None (occurrence: None)
  Receive Date: 20050811
  Receipt Date: 20050722
  Transmission Date: 20060218
  Serious: Yes (Disabling)
  Sender: FDA-Public Use
  Company Number: 2005-00529FE

PATIENT
  Age: 40 Year
  Sex: Female

DRUGS (3)
  1. MENOTROPINS [Suspect]
     Indication: OVARIAN DISORDER
     Dosage: 75 IU/150 IU/150IU INTRA-MUSCULAR
     Route: 030
     Dates: start: 20050329, end: 20050409
  2. MENOTROPINS [Suspect]
     Indication: OVARIAN DISORDER
     Dosage: 75 IU/150 IU/150IU INTRA-MUSCULAR
     Route: 030
     Dates: start: 20050410, end: 20050418
  3. MENOTROPINS [Suspect]
     Indication: OVARIAN DISORDER
     Dosage: 75 IU/150 IU/150IU INTRA-MUSCULAR
     Route: 030
     Dates: start: 20050428, end: 20050503

REACTIONS (1)
  - STOMATITIS NECROTISING [None]
